FAERS Safety Report 7113475-4 (Version None)
Quarter: 2010Q4

REPORT INFORMATION
  Report Type: 
  Country: None (occurrence: None)
  Receive Date: 20101119
  Receipt Date: 20101111
  Transmission Date: 20110411
  Serious: Yes (Other)
  Sender: FDA-Public Use
  Company Number: US-AMGEN LTD.-USASP2010000198

PATIENT

DRUGS (3)
  1. NPLATE [Suspect]
     Indication: IDIOPATHIC THROMBOCYTOPENIC PURPURA
     Dosage: 335 A?G, UNK
     Dates: start: 20090925, end: 20091120
  2. CORTICOSTEROIDS [Concomitant]
     Dosage: UNK
     Dates: start: 20090907
  3. RITUXIMAB [Concomitant]
     Dosage: 335 A?G/KG, UNK
     Dates: start: 20090912

REACTIONS (5)
  - CEREBRAL INFARCTION [None]
  - EMBOLISM ARTERIAL [None]
  - EVANS SYNDROME [None]
  - PLATELET COUNT INCREASED [None]
  - THROMBOSIS [None]
